FAERS Safety Report 7577349-7 (Version None)
Quarter: 2011Q2

REPORT INFORMATION
  Report Type: 
  Country: None (occurrence: None)
  Receive Date: 20110621
  Receipt Date: 20110606
  Transmission Date: 20111010
  Serious: Yes (Hospitalization)
  Sender: FDA-Public Use
  Company Number: AUR-APL-2010-02105

PATIENT
  Age: 87 Year
  Sex: Male

DRUGS (7)
  1. WARFARIN SODIUM [Concomitant]
  2. BEZAFIBRATE (BEZAFIBRATE) [Concomitant]
  3. OMEPRAZOLE [Concomitant]
  4. FINASTERIDE [Concomitant]
  5. BISOPROLOL FUMARATE [Suspect]
     Indication: ATRIAL FIBRILLATION
     Dosage: 10MG (10 MG, 1 IN 1 D), ORAL
     Route: 048
     Dates: end: 20100811
  6. HALOPERIDOL [Concomitant]
  7. SIMVASTATIN [Concomitant]

REACTIONS (6)
  - BRADYCARDIA [None]
  - AGITATION [None]
  - BLINDNESS [None]
  - GASTROINTESTINAL HAEMORRHAGE [None]
  - CONFUSIONAL STATE [None]
  - SYNCOPE [None]
